FAERS Safety Report 26190812 (Version 1)
Quarter: 2025Q4

REPORT INFORMATION
  Report Type: Spontaneous
  Country: US (occurrence: None)
  Receive Date: 20251222
  Receipt Date: 20251222
  Transmission Date: 20260117
  Serious: Yes (Other)
  Sender: FDA-CTU
  Company Number: None

PATIENT
  Age: 41 Year
  Sex: Female
  Weight: 81 kg

DRUGS (2)
  1. METFORMIN\NALTREXONE\TOPIRAMATE [Suspect]
     Active Substance: METFORMIN\NALTREXONE\TOPIRAMATE
     Indication: Inadequate diet
     Dosage: FREQUENCY : DAILY;
     Route: 048
     Dates: start: 20251015, end: 20251117
  2. METFORMIN\NALTREXONE\TOPIRAMATE [Suspect]
     Active Substance: METFORMIN\NALTREXONE\TOPIRAMATE
     Indication: Eating disorder

REACTIONS (1)
  - Headache [None]

NARRATIVE: CASE EVENT DATE: 20251117
